FAERS Safety Report 7972734-3 (Version None)
Quarter: 2011Q4

REPORT INFORMATION
  Report Type: 
  Country: None (occurrence: None)
  Receive Date: 20111213
  Receipt Date: 20111207
  Transmission Date: 20120403
  Serious: No
  Sender: FDA-Public Use
  Company Number: US-PFIZER INC-2011299081

PATIENT
  Sex: Female

DRUGS (2)
  1. VISTARIL [Suspect]
     Dosage: UNK
  2. VISTARIL [Suspect]
     Dosage: UNK, 3X/DAY

REACTIONS (1)
  - AMNESIA [None]
